FAERS Safety Report 17930969 (Version 8)
Quarter: 2022Q2

REPORT INFORMATION
  Report Type: Spontaneous
  Country: US (occurrence: None)
  Receive Date: 20200623
  Receipt Date: 20220630
  Transmission Date: 20220721
  Serious: Yes (Hospitalization, Other)
  Sender: FDA-Public Use
  Company Number: 2020SE77109

PATIENT
  Age: 13500 Day
  Sex: Male
  Weight: 222.3 kg

DRUGS (122)
  1. FARXIGA [Suspect]
     Active Substance: DAPAGLIFLOZIN PROPANEDIOL
     Indication: Type 2 diabetes mellitus
     Route: 048
     Dates: start: 20180506, end: 20190806
  2. FARXIGA [Suspect]
     Active Substance: DAPAGLIFLOZIN PROPANEDIOL
     Indication: Weight decreased
     Route: 048
     Dates: start: 20180506, end: 20190806
  3. FARXIGA [Suspect]
     Active Substance: DAPAGLIFLOZIN PROPANEDIOL
     Indication: Blood pressure decreased
     Route: 048
     Dates: start: 20180506, end: 20190806
  4. FARXIGA [Suspect]
     Active Substance: DAPAGLIFLOZIN PROPANEDIOL
     Indication: Type 2 diabetes mellitus
     Dosage: TAKE ONE TABLET BY MOUNT EVERY MORNING ONCE A DAY
     Route: 048
     Dates: start: 20181122
  5. FARXIGA [Suspect]
     Active Substance: DAPAGLIFLOZIN PROPANEDIOL
     Indication: Weight decreased
     Dosage: TAKE ONE TABLET BY MOUNT EVERY MORNING ONCE A DAY
     Route: 048
     Dates: start: 20181122
  6. FARXIGA [Suspect]
     Active Substance: DAPAGLIFLOZIN PROPANEDIOL
     Indication: Blood pressure decreased
     Dosage: TAKE ONE TABLET BY MOUNT EVERY MORNING ONCE A DAY
     Route: 048
     Dates: start: 20181122
  7. FARXIGA [Suspect]
     Active Substance: DAPAGLIFLOZIN PROPANEDIOL
     Indication: Type 2 diabetes mellitus
     Route: 048
     Dates: start: 20180506
  8. FARXIGA [Suspect]
     Active Substance: DAPAGLIFLOZIN PROPANEDIOL
     Indication: Weight decreased
     Route: 048
     Dates: start: 20180506
  9. FARXIGA [Suspect]
     Active Substance: DAPAGLIFLOZIN PROPANEDIOL
     Indication: Blood pressure decreased
     Route: 048
     Dates: start: 20180506
  10. FARXIGA [Suspect]
     Active Substance: DAPAGLIFLOZIN PROPANEDIOL
     Indication: Type 2 diabetes mellitus
     Route: 048
     Dates: start: 20180529
  11. FARXIGA [Suspect]
     Active Substance: DAPAGLIFLOZIN PROPANEDIOL
     Indication: Weight decreased
     Route: 048
     Dates: start: 20180529
  12. FARXIGA [Suspect]
     Active Substance: DAPAGLIFLOZIN PROPANEDIOL
     Indication: Blood pressure decreased
     Route: 048
     Dates: start: 20180529
  13. FARXIGA [Suspect]
     Active Substance: DAPAGLIFLOZIN PROPANEDIOL
     Indication: Type 2 diabetes mellitus
     Route: 048
     Dates: start: 20180207
  14. FARXIGA [Suspect]
     Active Substance: DAPAGLIFLOZIN PROPANEDIOL
     Indication: Weight decreased
     Route: 048
     Dates: start: 20180207
  15. FARXIGA [Suspect]
     Active Substance: DAPAGLIFLOZIN PROPANEDIOL
     Indication: Blood pressure decreased
     Route: 048
     Dates: start: 20180207
  16. FARXIGA [Suspect]
     Active Substance: DAPAGLIFLOZIN PROPANEDIOL
     Indication: Type 2 diabetes mellitus
     Route: 048
     Dates: start: 20180801
  17. FARXIGA [Suspect]
     Active Substance: DAPAGLIFLOZIN PROPANEDIOL
     Indication: Weight decreased
     Route: 048
     Dates: start: 20180801
  18. FARXIGA [Suspect]
     Active Substance: DAPAGLIFLOZIN PROPANEDIOL
     Indication: Blood pressure decreased
     Route: 048
     Dates: start: 20180801
  19. FARXIGA [Suspect]
     Active Substance: DAPAGLIFLOZIN PROPANEDIOL
     Indication: Type 2 diabetes mellitus
     Route: 048
     Dates: start: 20180904
  20. FARXIGA [Suspect]
     Active Substance: DAPAGLIFLOZIN PROPANEDIOL
     Indication: Weight decreased
     Route: 048
     Dates: start: 20180904
  21. FARXIGA [Suspect]
     Active Substance: DAPAGLIFLOZIN PROPANEDIOL
     Indication: Blood pressure decreased
     Route: 048
     Dates: start: 20180904
  22. FARXIGA [Suspect]
     Active Substance: DAPAGLIFLOZIN PROPANEDIOL
     Indication: Type 2 diabetes mellitus
     Route: 048
     Dates: start: 20181002
  23. FARXIGA [Suspect]
     Active Substance: DAPAGLIFLOZIN PROPANEDIOL
     Indication: Weight decreased
     Route: 048
     Dates: start: 20181002
  24. FARXIGA [Suspect]
     Active Substance: DAPAGLIFLOZIN PROPANEDIOL
     Indication: Blood pressure decreased
     Route: 048
     Dates: start: 20181002
  25. FARXIGA [Suspect]
     Active Substance: DAPAGLIFLOZIN PROPANEDIOL
     Indication: Type 2 diabetes mellitus
     Route: 048
     Dates: start: 20181126
  26. FARXIGA [Suspect]
     Active Substance: DAPAGLIFLOZIN PROPANEDIOL
     Indication: Weight decreased
     Route: 048
     Dates: start: 20181126
  27. FARXIGA [Suspect]
     Active Substance: DAPAGLIFLOZIN PROPANEDIOL
     Indication: Blood pressure decreased
     Route: 048
     Dates: start: 20181126
  28. FARXIGA [Suspect]
     Active Substance: DAPAGLIFLOZIN PROPANEDIOL
     Indication: Type 2 diabetes mellitus
     Route: 048
     Dates: start: 20181222
  29. FARXIGA [Suspect]
     Active Substance: DAPAGLIFLOZIN PROPANEDIOL
     Indication: Weight decreased
     Route: 048
     Dates: start: 20181222
  30. FARXIGA [Suspect]
     Active Substance: DAPAGLIFLOZIN PROPANEDIOL
     Indication: Blood pressure decreased
     Route: 048
     Dates: start: 20181222
  31. FARXIGA [Suspect]
     Active Substance: DAPAGLIFLOZIN PROPANEDIOL
     Indication: Type 2 diabetes mellitus
     Route: 048
     Dates: start: 20190116
  32. FARXIGA [Suspect]
     Active Substance: DAPAGLIFLOZIN PROPANEDIOL
     Indication: Weight decreased
     Route: 048
     Dates: start: 20190116
  33. FARXIGA [Suspect]
     Active Substance: DAPAGLIFLOZIN PROPANEDIOL
     Indication: Blood pressure decreased
     Route: 048
     Dates: start: 20190116
  34. FUROSEMIDE [Concomitant]
     Active Substance: FUROSEMIDE
     Dates: start: 20180924
  35. FUROSEMIDE [Concomitant]
     Active Substance: FUROSEMIDE
     Dates: start: 20181114
  36. FUROSEMIDE [Concomitant]
     Active Substance: FUROSEMIDE
     Dates: start: 20181231
  37. FUROSEMIDE [Concomitant]
     Active Substance: FUROSEMIDE
     Dates: start: 20190114
  38. METFORMIN [Concomitant]
     Active Substance: METFORMIN HYDROCHLORIDE
     Indication: Diabetes mellitus
     Dates: start: 2015, end: 2019
  39. METFORMIN [Concomitant]
     Active Substance: METFORMIN HYDROCHLORIDE
     Indication: Diabetes mellitus
     Dates: start: 2013, end: 2014
  40. METFORMIN [Concomitant]
     Active Substance: METFORMIN HYDROCHLORIDE
     Indication: Diabetes mellitus
     Dates: start: 2015, end: 2016
  41. METFORMIN [Concomitant]
     Active Substance: METFORMIN HYDROCHLORIDE
     Indication: Diabetes mellitus
     Dates: start: 20180506
  42. METFORMIN [Concomitant]
     Active Substance: METFORMIN HYDROCHLORIDE
     Indication: Diabetes mellitus
     Dates: start: 20180529
  43. METFORMIN [Concomitant]
     Active Substance: METFORMIN HYDROCHLORIDE
     Indication: Diabetes mellitus
     Dates: start: 20180808
  44. METFORMIN [Concomitant]
     Active Substance: METFORMIN HYDROCHLORIDE
     Indication: Diabetes mellitus
     Dates: start: 20180509
  45. METFORMIN [Concomitant]
     Active Substance: METFORMIN HYDROCHLORIDE
     Indication: Diabetes mellitus
     Dates: start: 20181103
  46. METFORMIN [Concomitant]
     Active Substance: METFORMIN HYDROCHLORIDE
     Indication: Diabetes mellitus
     Dates: start: 20181118
  47. METFORMIN [Concomitant]
     Active Substance: METFORMIN HYDROCHLORIDE
     Indication: Diabetes mellitus
     Dates: start: 20190118
  48. BYSTOLIC [Concomitant]
     Active Substance: NEBIVOLOL HYDROCHLORIDE
     Indication: Blood pressure measurement
     Dates: start: 2015, end: 2019
  49. CLINDAMYCIN [Concomitant]
     Active Substance: CLINDAMYCIN
  50. CHLORHEXIDINE [Concomitant]
     Active Substance: CHLORHEXIDINE
  51. OLMESARTAN [Concomitant]
     Active Substance: OLMESARTAN
  52. ROSUVASTATIN [Concomitant]
     Active Substance: ROSUVASTATIN
  53. HYDROCHLOROTHIAZDE [Concomitant]
  54. AMLODIPINE [Concomitant]
     Active Substance: AMLODIPINE BESYLATE
  55. METRONIDAZOLE [Concomitant]
     Active Substance: METRONIDAZOLE
  56. OXYCODONE [Concomitant]
     Active Substance: OXYCODONE
  57. TRAMADOL [Concomitant]
     Active Substance: TRAMADOL
  58. ATORVASTATIN [Concomitant]
     Active Substance: ATORVASTATIN
  59. CARVEDILOL [Concomitant]
     Active Substance: CARVEDILOL
  60. NASTURTIUM OFFICINALE/SODIUM SULFATE/MYOSOTIS ARVENSIS/GERANIUM ROBERT [Concomitant]
  61. HYDRALAZINE [Concomitant]
     Active Substance: HYDRALAZINE HYDROCHLORIDE
  62. ISOSORBIDE [Concomitant]
     Active Substance: ISOSORBIDE
  63. GLIPIZIDE [Concomitant]
     Active Substance: GLIPIZIDE
  64. LOSARTAN [Concomitant]
     Active Substance: LOSARTAN
  65. DOXYCYCLINE [Concomitant]
     Active Substance: DOXYCYCLINE
  66. JANUMET [Concomitant]
     Active Substance: METFORMIN HYDROCHLORIDE\SITAGLIPTIN PHOSPHATE
  67. PRAVASTATIN [Concomitant]
     Active Substance: PRAVASTATIN
  68. LANTUS [Concomitant]
     Active Substance: INSULIN GLARGINE
  69. CEFPODOXIME/AZITHROMYCIN [Concomitant]
  70. BIDIL [Concomitant]
     Active Substance: HYDRALAZINE HYDROCHLORIDE\ISOSORBIDE DINITRATE
  71. IPRATROPIUM [Concomitant]
     Active Substance: IPRATROPIUM
  72. ASPIRIN [Concomitant]
     Active Substance: ASPIRIN
     Dates: start: 2019
  73. AZITHROMYCIN [Concomitant]
     Active Substance: AZITHROMYCIN
  74. TORSEMIDE [Concomitant]
     Active Substance: TORSEMIDE
  75. SULFAMETHOXAZOLE [Concomitant]
     Active Substance: SULFAMETHOXAZOLE
  76. INVOKANA [Concomitant]
     Active Substance: CANAGLIFLOZIN
  77. PREDNISONE [Concomitant]
     Active Substance: PREDNISONE
  78. PROAIR HFA [Concomitant]
     Active Substance: ALBUTEROL SULFATE
  79. CLARITHROMYCIN [Concomitant]
     Active Substance: CLARITHROMYCIN
  80. NEURONTIN [Concomitant]
     Active Substance: GABAPENTIN
     Route: 065
     Dates: start: 20170328
  81. PAXIL [Concomitant]
     Active Substance: PAROXETINE HYDROCHLORIDE
     Indication: Depression
     Route: 065
     Dates: start: 20170328
  82. PAXIL [Concomitant]
     Active Substance: PAROXETINE HYDROCHLORIDE
     Indication: Depression
     Dates: start: 2018, end: 2019
  83. GLUCOSE/CALCIUM CHLORIDE DIHYDRATE/SODIUM CHLORIDE/ACETIC ACID/MAGNESI [Concomitant]
     Route: 065
     Dates: start: 20170328
  84. VITAMIN C [Concomitant]
     Active Substance: ASCORBIC ACID
     Route: 065
     Dates: start: 20190225
  85. LEVEMIR [Concomitant]
     Active Substance: INSULIN DETEMIR
     Route: 065
     Dates: start: 20190225
  86. XYLOCAINE [Concomitant]
     Active Substance: LIDOCAINE HYDROCHLORIDE
     Route: 065
     Dates: start: 20190225
  87. MIRALAX [Concomitant]
     Active Substance: POLYETHYLENE GLYCOL 3350
     Route: 065
     Dates: start: 20190225
  88. ZINCATE [Concomitant]
     Route: 065
     Dates: start: 20190225
  89. LOPRESSOR [Concomitant]
     Active Substance: METOPROLOL TARTRATE
     Route: 065
     Dates: start: 20190225
  90. ZOFRAN [Concomitant]
     Active Substance: ONDANSETRON HYDROCHLORIDE
     Route: 065
     Dates: start: 20190212
  91. CLORPACTIN [Concomitant]
     Route: 065
     Dates: start: 20190222
  92. VITAMINS [Concomitant]
     Active Substance: VITAMINS
     Route: 065
     Dates: start: 20190228
  93. BYDUREON BCISE [Concomitant]
     Active Substance: EXENATIDE
     Route: 065
     Dates: start: 20190228
  94. LYRICA [Concomitant]
     Active Substance: PREGABALIN
     Indication: Neuralgia
     Route: 065
     Dates: start: 20190228
  95. LYRICA [Concomitant]
     Active Substance: PREGABALIN
     Indication: Neuralgia
     Dates: start: 2015, end: 2019
  96. HEPARIN [Concomitant]
     Active Substance: HEPARIN SODIUM
     Route: 065
     Dates: start: 20190228
  97. CEFIXIME [Concomitant]
     Active Substance: CEFIXIME
     Dates: start: 20190313
  98. ZINC [Concomitant]
     Active Substance: ZINC
     Dates: start: 20190313
  99. HUMALOG [Concomitant]
     Active Substance: INSULIN LISPRO
  100. MINOCYCLINE [Concomitant]
     Active Substance: MINOCYCLINE HYDROCHLORIDE
  101. ENTRESTO [Concomitant]
     Active Substance: SACUBITRIL\VALSARTAN
     Indication: Cardiac failure
     Dates: start: 2019
  102. CLONIDINE [Concomitant]
     Active Substance: CLONIDINE
  103. RANIBIZUMAB [Concomitant]
     Active Substance: RANIBIZUMAB
  104. CEFEPIME [Concomitant]
     Active Substance: CEFEPIME HYDROCHLORIDE
  105. ACETAMINOPHEN\OXYCODONE HYDROCHLORIDE [Concomitant]
     Active Substance: ACETAMINOPHEN\OXYCODONE HYDROCHLORIDE
  106. AMMONIUM LACTATE [Concomitant]
     Active Substance: AMMONIUM LACTATE
     Dates: start: 2018, end: 2019
  107. ACARBOSE/METFORMIN HYDROCHLORIDE [Concomitant]
  108. KEFLEX [Concomitant]
     Active Substance: CEPHALEXIN
  109. HYDRALAZINE HCL [Concomitant]
     Active Substance: HYDRALAZINE HYDROCHLORIDE
  110. LEVOTHYROXINE SODIUM [Concomitant]
     Active Substance: LEVOTHYROXINE SODIUM
  111. TERBINAFINE [Concomitant]
     Active Substance: TERBINAFINE
  112. REGADENOSON [Concomitant]
     Active Substance: REGADENOSON
  113. NOREPINEPHRINE [Concomitant]
     Active Substance: NOREPINEPHRINE
  114. HALOPERIDOL [Concomitant]
     Active Substance: HALOPERIDOL
  115. DEXMEDETOMIDINE [Concomitant]
     Active Substance: DEXMEDETOMIDINE
  116. HYDROCHLOROTHIAZIDE\LISINOPRIL [Concomitant]
     Active Substance: HYDROCHLOROTHIAZIDE\LISINOPRIL
  117. LASIX [Concomitant]
     Active Substance: FUROSEMIDE
     Indication: Fluid retention
     Dates: start: 2018
  118. ULTRAM [Concomitant]
     Active Substance: TRAMADOL HYDROCHLORIDE
     Indication: Pain
     Dates: start: 2019
  119. INSULIN GLARGINE [Concomitant]
     Active Substance: INSULIN GLARGINE
     Indication: Type 2 diabetes mellitus
     Dates: start: 2019
  120. GLUCOTROL [Concomitant]
     Active Substance: GLIPIZIDE
     Dates: start: 20130609
  121. GLUCOTROL [Concomitant]
     Active Substance: GLIPIZIDE
     Dates: start: 20140413, end: 20140518
  122. GLUCOTROL [Concomitant]
     Active Substance: GLIPIZIDE
     Dates: start: 2015, end: 2017

REACTIONS (19)
  - Fournier^s gangrene [Unknown]
  - Sepsis [Unknown]
  - Wound abscess [Unknown]
  - Cellulitis [Unknown]
  - Groin abscess [Unknown]
  - Pelvic abscess [Unknown]
  - Scrotal abscess [Unknown]
  - Perineal abscess [Unknown]
  - Cellulitis gangrenous [Unknown]
  - Genital abscess [Unknown]
  - Urinary tract infection [Unknown]
  - Scrotal gangrene [Unknown]
  - Septic shock [Unknown]
  - Subcutaneous abscess [Unknown]
  - Chronic respiratory failure [Unknown]
  - Acute kidney injury [Unknown]
  - Hyponatraemia [Unknown]
  - Acute respiratory failure [Unknown]
  - Genital infection [Unknown]

NARRATIVE: CASE EVENT DATE: 20190207
